FAERS Safety Report 23275432 (Version 1)
Quarter: 2023Q4

REPORT INFORMATION
  Report Type: Spontaneous
  Country: US (occurrence: US)
  Receive Date: 20231208
  Receipt Date: 20231208
  Transmission Date: 20240110
  Serious: No
  Sender: FDA-Public Use
  Company Number: US-ADVANZ PHARMA-202312011194

PATIENT

DRUGS (1)
  1. HYDROXYCHLOROQUINE [Suspect]
     Active Substance: HYDROXYCHLOROQUINE
     Indication: Arthritis
     Dosage: UNK, PLAQUENIL

REACTIONS (2)
  - Hypersensitivity [Unknown]
  - Retinal disorder [Unknown]
